FAERS Safety Report 16841528 (Version 1)
Quarter: 2019Q3

REPORT INFORMATION
  Report Type: Report from Study
  Country: GB (occurrence: GB)
  Receive Date: 20190923
  Receipt Date: 20190923
  Transmission Date: 20191005
  Serious: Yes (Death, Life-Threatening, Hospitalization, Other)
  Sender: FDA-Public Use
  Company Number: PHHO2017GB015039

PATIENT
  Age: 77 Year
  Sex: Female
  Weight: 73.5 kg

DRUGS (6)
  1. LCZ696 [Suspect]
     Active Substance: SACUBITRIL\VALSARTAN
     Indication: CARDIAC FAILURE
     Dosage: 200 MG, BID
     Route: 048
     Dates: start: 20160818, end: 20171213
  2. FUROSEMIDE. [Concomitant]
     Active Substance: FUROSEMIDE
     Dosage: 80 MG
     Route: 042
     Dates: start: 20171230, end: 20171230
  3. FUROSEMIDE. [Concomitant]
     Active Substance: FUROSEMIDE
     Dosage: 80 MG, QD (1200 MG)
     Route: 048
     Dates: start: 20171208, end: 20171213
  4. PLACEBO [Suspect]
     Active Substance: UNSPECIFIED INGREDIENT
     Indication: CARDIAC FAILURE
     Dosage: UNK
     Route: 048
     Dates: start: 20160818, end: 20171213
  5. FUROSEMIDE. [Concomitant]
     Active Substance: FUROSEMIDE
     Indication: CARDIAC FAILURE
     Dosage: 20 MG, QD (800 MG)
     Route: 048
     Dates: start: 20171208, end: 20171213
  6. FUROSEMIDE. [Concomitant]
     Active Substance: FUROSEMIDE
     Dosage: 40 MG
     Route: 042
     Dates: start: 20171213, end: 20171213

REACTIONS (17)
  - Non-cardiac chest pain [Recovered/Resolved]
  - Fall [Recovered/Resolved]
  - Acute kidney injury [Not Recovered/Not Resolved]
  - Cellulitis [Recovered/Resolved]
  - Cardiac failure acute [Recovered/Resolved]
  - Pneumonia [Not Recovered/Not Resolved]
  - Lower respiratory tract infection [Not Recovered/Not Resolved]
  - Musculoskeletal pain [Recovered/Resolved]
  - Syncope [Recovered/Resolved]
  - Non-cardiac chest pain [Not Recovered/Not Resolved]
  - Abscess limb [Recovered/Resolved]
  - Head injury [Recovered/Resolved]
  - Gastroenteritis [Recovered/Resolved]
  - Lower respiratory tract infection [Recovered/Resolved]
  - Renal impairment [Recovering/Resolving]
  - Cardiac failure congestive [Fatal]
  - Chest pain [Recovered/Resolved]

NARRATIVE: CASE EVENT DATE: 20161103
